FAERS Safety Report 12605283 (Version 3)
Quarter: 2016Q4

REPORT INFORMATION
  Report Type: Spontaneous
  Country: JP (occurrence: JP)
  Receive Date: 20160729
  Receipt Date: 20161118
  Transmission Date: 20170207
  Serious: Yes (Hospitalization, Other)
  Sender: FDA-Public Use
  Company Number: JP-009507513-1607JPN008336

PATIENT
  Age: 28 Day
  Sex: Male
  Weight: .92 kg

DRUGS (15)
  1. DIAZOXIDE CAPSULES 25 MG MSD [Suspect]
     Active Substance: DIAZOXIDE
     Dosage: 1.5 MG, TID
     Route: 050
     Dates: start: 20160709, end: 20160710
  2. URSO [Concomitant]
     Active Substance: URSODIOL
     Dosage: DAILY DOSE UNKNOWN
     Route: 048
  3. TAURINE [Concomitant]
     Active Substance: TAURINE
     Route: 048
  4. PHENOBAL [Concomitant]
     Active Substance: PHENOBARBITAL
     Dosage: DAILY DOSE UNKNOWN
     Route: 065
  5. LASIX [Concomitant]
     Active Substance: FUROSEMIDE
     Dosage: DAILY DOSE UNKNOWN
     Route: 065
  6. L CARTIN [Concomitant]
     Active Substance: LEVOCARNITINE HYDROCHLORIDE
     Route: 048
  7. DIAZOXIDE CAPSULES 25 MG MSD [Suspect]
     Active Substance: DIAZOXIDE
     Indication: HYPERINSULINAEMIC HYPOGLYCAEMIA
     Dosage: 1 MG, TID
     Route: 050
     Dates: start: 20160707, end: 20160708
  8. CAFFEINE. [Concomitant]
     Active Substance: CAFFEINE
     Dosage: DAILY DOSE UNKNOWN
     Route: 048
  9. ELENTAL [Concomitant]
     Active Substance: AMINO ACIDS\CARBOHYDRATES\MINERALS\SOYBEAN OIL\VITAMINS
     Dosage: DAILY DOSE UNKNOWN
     Route: 048
  10. DIAZOXIDE CAPSULES 25 MG MSD [Suspect]
     Active Substance: DIAZOXIDE
     Dosage: 2 MG, TID
     Route: 050
     Dates: start: 20160711, end: 20160714
  11. DIAZOXIDE CAPSULES 25 MG MSD [Suspect]
     Active Substance: DIAZOXIDE
     Dosage: 1 MG, TID
     Route: 050
     Dates: start: 20160715, end: 20160725
  12. PANVITAN [Concomitant]
     Route: 048
  13. SODIUM CHLORIDE. [Concomitant]
     Active Substance: SODIUM CHLORIDE
     Route: 065
  14. SODIUM BICARBONATE. [Concomitant]
     Active Substance: SODIUM BICARBONATE
     Route: 065
  15. ALDACTONE A [Concomitant]
     Active Substance: SPIRONOLACTONE
     Route: 048

REACTIONS (3)
  - Oedema [Recovered/Resolved]
  - Platelet count decreased [Recovered/Resolved]
  - Anaemia [Recovered/Resolved]

NARRATIVE: CASE EVENT DATE: 20160714
